FAERS Safety Report 4438138-5 (Version None)
Quarter: 2004Q3

REPORT INFORMATION
  Report Type: 
  Country: None (occurrence: None)
  Receive Date: 20040831
  Receipt Date: 20040528
  Transmission Date: 20050211
  Serious: Yes (Other)
  Sender: FDA-Public Use
  Company Number: US-GLAXOSMITHKLINE-A0512603A

PATIENT
  Age: 22 Year
  Sex: Female
  Weight: 75 kg

DRUGS (2)
  1. WELLBUTRIN [Suspect]
     Route: 048
     Dates: start: 20030916, end: 20040520
  2. ORAL CONTRACEPTIVES [Concomitant]
     Dates: start: 19980901

REACTIONS (3)
  - LOSS OF CONSCIOUSNESS [None]
  - MUSCLE RIGIDITY [None]
  - PETIT MAL EPILEPSY [None]
